FAERS Safety Report 6307894-3 (Version None)
Quarter: 2009Q3

REPORT INFORMATION
  Report Type: 
  Country: None (occurrence: None)
  Receive Date: 20090813
  Receipt Date: 20090805
  Transmission Date: 20100115
  Serious: Yes (Other)
  Sender: FDA-Public Use
  Company Number: BR-ASTRAZENECA-2009UW21807

PATIENT
  Age: 25 Year
  Sex: Female
  Weight: 75 kg

DRUGS (9)
  1. SEROQUEL [Suspect]
     Route: 048
  2. CRESTOR [Suspect]
     Route: 048
  3. CAFFEINE CITRATE [Suspect]
     Route: 048
     Dates: end: 20090802
  4. CARISOPRODOL [Suspect]
     Route: 048
     Dates: end: 20090802
  5. DICLOFENAC [Suspect]
     Route: 048
     Dates: end: 20090802
  6. ACETAMINOPHEN [Suspect]
     Route: 048
     Dates: end: 20090802
  7. AMILORIDE HCL AND HYDROCHLOROTHIAZIDE [Suspect]
     Route: 048
     Dates: end: 20090802
  8. GABAPENTIN [Concomitant]
     Route: 048
  9. LEVOTHYROXINE [Concomitant]
     Route: 048

REACTIONS (4)
  - DIZZINESS [None]
  - NAUSEA [None]
  - OVERDOSE [None]
  - VOMITING [None]
